FAERS Safety Report 9483864 (Version 1)
Quarter: 2013Q3

REPORT INFORMATION
  Report Type: Spontaneous
  Country: CA (occurrence: CA)
  Receive Date: 20130828
  Receipt Date: 20130828
  Transmission Date: 20140515
  Serious: Yes (Other)
  Sender: FDA-Public Use
  Company Number: CA-AMGEN-KDL347198

PATIENT
  Sex: Female

DRUGS (6)
  1. ENBREL [Suspect]
     Indication: RHEUMATOID ARTHRITIS
     Dosage: UNK UNK, QWK
     Route: 065
     Dates: start: 20011004
  2. METHOTREXATE [Concomitant]
     Dosage: 17.5 MG, QWK
     Route: 048
  3. LANSOPRAZOLE [Concomitant]
     Dosage: UNK UNK, UNK
  4. LEVOTHRYROXINE SODIUM [Concomitant]
     Dosage: UNK UNK, UNK
  5. AMITRIPTYLINE HYDROCHLORIDE [Concomitant]
     Dosage: UNK UNK, UNK
  6. CELECOXIB [Concomitant]
     Dosage: UNK UNK, UNK

REACTIONS (2)
  - Pulmonary fibrosis [Unknown]
  - Injection site bruising [Unknown]
